FAERS Safety Report 6977260-6 (Version None)
Quarter: 2010Q3

REPORT INFORMATION
  Report Type: 
  Country: None (occurrence: None)
  Receive Date: 20100910
  Receipt Date: 20100901
  Transmission Date: 20110219
  Serious: Yes (Death)
  Sender: FDA-Public Use
  Company Number: GXKR2010CH09992

PATIENT
  Sex: Female
  Weight: 65 kg

DRUGS (9)
  1. VINORELBINE [Suspect]
     Indication: LUNG CARCINOMA CELL TYPE UNSPECIFIED STAGE IV
     Dosage: CYCLES 1 AND 2: 25 RNG/M2 AND CYCLES 3 AND 4:17 MG/M2
     Route: 041
     Dates: start: 20090421, end: 20090701
  2. CISPLATIN [Interacting]
     Indication: LUNG CARCINOMA CELL TYPE UNSPECIFIED STAGE IV
     Dosage: 90 MG/M2, 1XPER CYCLE
     Route: 041
     Dates: start: 20090421, end: 20090701
  3. VINCA ALKALOIDS AND ANALOGUES [Suspect]
     Indication: LUNG CARCINOMA CELL TYPE UNSPECIFIED STAGE IV
     Dosage: 5 MG, TID
     Route: 048
     Dates: start: 20090512, end: 20090605
  4. PANTOPRAZOLE SODIUM [Concomitant]
     Dosage: UNK
     Route: 048
  5. CLEXANE [Concomitant]
     Dosage: UNK
     Route: 058
  6. ESCITALOPRAM OXALATE [Concomitant]
     Dosage: UNK
     Route: 048
  7. HALDOL [Concomitant]
     Dosage: UNK
     Route: 048
  8. AMLODIPINE [Concomitant]
     Dosage: UNK
     Route: 048
  9. ISCADOR [Concomitant]
     Dosage: UNK
     Route: 048
     Dates: start: 20100701

REACTIONS (5)
  - ALOPECIA [None]
  - ASTHENIA [None]
  - GRANULOCYTOPENIA [None]
  - INFECTION [None]
  - THROMBOCYTOPENIA [None]
